FAERS Safety Report 10462824 (Version 8)
Quarter: 2014Q4

REPORT INFORMATION
  Report Type: Spontaneous
  Country: CL (occurrence: CL)
  Receive Date: 20140918
  Receipt Date: 20141229
  Transmission Date: 20150528
  Serious: Yes (Hospitalization, Other)
  Sender: FDA-Public Use
  Company Number: CL-009507513-1405CHL015462

PATIENT
  Age: 63 Year
  Sex: Female
  Weight: 60.7 kg

DRUGS (12)
  1. PEGINTRON [Suspect]
     Active Substance: PEGINTERFERON ALFA-2B
     Dosage: FORMULATION: PREFILLED PENS, 0.3 ML, MONTHLY
     Route: 058
     Dates: start: 20140907, end: 20140915
  2. PEGINTRON [Suspect]
     Active Substance: PEGINTERFERON ALFA-2B
     Dosage: REDIPEN, 0.3 ML, MONTHLY
     Route: 058
     Dates: start: 20140718, end: 20140905
  3. PEGINTRON [Suspect]
     Active Substance: PEGINTERFERON ALFA-2B
     Dosage: 0.3ML MONTHLY
     Route: 058
     Dates: start: 201410
  4. VICTRELIS [Suspect]
     Active Substance: BOCEPREVIR
     Indication: HEPATITIS C
     Dosage: 2400 MG DAILY
     Route: 048
     Dates: start: 20140616, end: 20140824
  5. REBETOL [Suspect]
     Active Substance: RIBAVIRIN
     Indication: HEPATITIS C
     Dosage: 1000 MG, DAILY
     Route: 048
     Dates: start: 20140519, end: 201406
  6. REBETOL [Suspect]
     Active Substance: RIBAVIRIN
     Dosage: 400 MG, Q12H
     Route: 048
     Dates: start: 201406, end: 20140708
  7. REBETOL [Suspect]
     Active Substance: RIBAVIRIN
     Dosage: 1000 MG, QD
     Route: 048
     Dates: start: 20140903
  8. PEGINTRON [Suspect]
     Active Substance: PEGINTERFERON ALFA-2B
     Dosage: FORMULATION: PREFILLED PENS. 0.4 ML MONTHLY
     Route: 058
     Dates: start: 20140915, end: 2014
  9. REBETOL [Suspect]
     Active Substance: RIBAVIRIN
     Dosage: 1000 MG, QD
     Route: 048
     Dates: start: 20140709, end: 20140902
  10. VICTRELIS [Suspect]
     Active Substance: BOCEPREVIR
     Dosage: UNK, SHE FORGOT TO TAKE THE LAST DOSE OF THE DAT
     Route: 048
     Dates: start: 20140825, end: 20140825
  11. VICTRELIS [Suspect]
     Active Substance: BOCEPREVIR
     Dosage: 2400 MG DAILY
     Route: 048
     Dates: start: 20140903
  12. PEGINTRON [Suspect]
     Active Substance: PEGINTERFERON ALFA-2B
     Indication: HEPATITIS C
     Dosage: FORMULATION: PREFILLED PENS, 0.5 ML, MONTHLY
     Route: 058
     Dates: start: 20140519, end: 20140717

REACTIONS (65)
  - Fatigue [Unknown]
  - Pain in extremity [Not Recovered/Not Resolved]
  - Dysuria [Recovered/Resolved]
  - Frustration [Recovering/Resolving]
  - Neutropenia [Not Recovered/Not Resolved]
  - Erythema [Unknown]
  - Nasopharyngitis [Unknown]
  - Escherichia urinary tract infection [Recovered/Resolved]
  - Decreased appetite [Recovering/Resolving]
  - Myalgia [Unknown]
  - Urinary tract infection [Recovering/Resolving]
  - Feeling cold [Recovering/Resolving]
  - Neutropenia [Recovering/Resolving]
  - Vomiting [Recovering/Resolving]
  - Alopecia [Unknown]
  - Discomfort [Not Recovered/Not Resolved]
  - Headache [Unknown]
  - Catheter removal [Unknown]
  - Diarrhoea [Unknown]
  - Catheter site related reaction [Unknown]
  - Haematocrit decreased [Unknown]
  - Pruritus [Recovering/Resolving]
  - Pruritus [Recovering/Resolving]
  - Drug dose omission [Unknown]
  - Inappropriate schedule of drug administration [Unknown]
  - Nausea [Recovered/Resolved]
  - Influenza [Not Recovered/Not Resolved]
  - Nasal dryness [Not Recovered/Not Resolved]
  - Anxiety [Recovering/Resolving]
  - Dysgeusia [Not Recovered/Not Resolved]
  - Headache [Not Recovered/Not Resolved]
  - Influenza like illness [Unknown]
  - Weight decreased [Not Recovered/Not Resolved]
  - Constipation [Not Recovered/Not Resolved]
  - Pain [Recovering/Resolving]
  - Oral candidiasis [Unknown]
  - Puncture site reaction [Unknown]
  - Polydipsia [Unknown]
  - Gastrooesophageal reflux disease [Unknown]
  - White blood cell count increased [Unknown]
  - Neutrophil count decreased [Unknown]
  - White blood cell count decreased [Recovering/Resolving]
  - Depressed mood [Unknown]
  - Pyelonephritis [Recovered/Resolved]
  - Nephrolithiasis [Recovered/Resolved]
  - Mood swings [Recovering/Resolving]
  - Dry skin [Unknown]
  - Abdominal pain [Recovered/Resolved]
  - Fatigue [Recovered/Resolved]
  - Eyelid oedema [Recovered/Resolved]
  - Neutropenia [Unknown]
  - Incision site complication [Unknown]
  - Feeding disorder [Recovering/Resolving]
  - Catheter placement [Recovered/Resolved]
  - Mucosal dryness [Not Recovered/Not Resolved]
  - Oral disorder [Recovered/Resolved]
  - Leukopenia [Recovering/Resolving]
  - Diarrhoea [Unknown]
  - Depressed mood [Recovered/Resolved]
  - Cough [Unknown]
  - Leukopenia [Recovering/Resolving]
  - Abdominal discomfort [Not Recovered/Not Resolved]
  - Productive cough [Not Recovered/Not Resolved]
  - Nausea [Recovering/Resolving]
  - Depressive symptom [Unknown]

NARRATIVE: CASE EVENT DATE: 2014
